FAERS Safety Report 8852874 (Version 1)
Quarter: 2012Q4

REPORT INFORMATION
  Report Type: 
  Country: CA (occurrence: CA)
  Receive Date: 20121022
  Receipt Date: 20121022
  Transmission Date: 20130627
  Serious: Yes (Death, Hospitalization)
  Sender: FDA-Public Use
  Company Number: PHHY2008CA31067

PATIENT
  Age: 73 Year
  Sex: Male

DRUGS (2)
  1. ZOMETA [Suspect]
     Indication: LUNG NEOPLASM MALIGNANT
     Dosage: 4 mg every 8 weeks
     Route: 042
  2. ZOMETA [Suspect]
     Dosage: 3.5 mg, UNK
     Route: 042
     Dates: start: 20081024

REACTIONS (6)
  - Death [Fatal]
  - Pleural effusion [Unknown]
  - Local swelling [Unknown]
  - Oedema peripheral [Unknown]
  - Haemoglobin decreased [Unknown]
  - Blood calcium decreased [Unknown]
